FAERS Safety Report 7729496-4 (Version None)
Quarter: 2011Q3

REPORT INFORMATION
  Report Type: 
  Country: None (occurrence: None)
  Receive Date: 20110831
  Receipt Date: 20110831
  Transmission Date: 20111222
  Serious: Yes (Hospitalization)
  Sender: FDA-Public Use
  Company Number: None

PATIENT
  Age: 87 Year
  Sex: Male
  Weight: 81.9 kg

DRUGS (1)
  1. WARFARIN SODIUM [Suspect]
     Indication: ATRIAL FIBRILLATION
     Dosage: 5 MG UD PO
     Route: 048
     Dates: start: 20060418, end: 20110816

REACTIONS (4)
  - FALL [None]
  - HAEMORRHAGE [None]
  - HYPOTENSION [None]
  - HAEMATOMA [None]
